FAERS Safety Report 9370530 (Version 1)
Quarter: 2013Q2

REPORT INFORMATION
  Report Type: Spontaneous
  Country: US (occurrence: US)
  Receive Date: 20130626
  Receipt Date: 20130626
  Transmission Date: 20140414
  Serious: Yes (Death, Life-Threatening, Other)
  Sender: FDA-Public Use
  Company Number: US-ROXANE LABORATORIES, INC.-2013-RO-01029RO

PATIENT
  Age: 73 Year
  Sex: Female

DRUGS (1)
  1. IRBESARTAN [Suspect]

REACTIONS (8)
  - Acute hepatic failure [Fatal]
  - Shock [Unknown]
  - Renal failure acute [Unknown]
  - Acute myocardial infarction [Unknown]
  - Blood lactic acid increased [Unknown]
  - Encephalopathy [Unknown]
  - Hypothermia [Unknown]
  - Hypoglycaemia [Unknown]
